APPROVED DRUG PRODUCT: DAPTOMYCIN
Active Ingredient: DAPTOMYCIN
Strength: 500MG/VIAL
Dosage Form/Route: POWDER;INTRAVENOUS
Application: A091039 | Product #001 | TE Code: AP
Applicant: TEVA PHARMACEUTICALS USA INC
Approved: Mar 25, 2016 | RLD: No | RS: No | Type: RX